FAERS Safety Report 7056188-X (Version None)
Quarter: 2010Q4

REPORT INFORMATION
  Report Type: 
  Country: None (occurrence: None)
  Receive Date: 20101021
  Receipt Date: 20101014
  Transmission Date: 20110411
  Serious: Yes (Other)
  Sender: FDA-Public Use
  Company Number: US-TEVA-244300USA

PATIENT
  Sex: Female

DRUGS (2)
  1. ACYCLOVIR SODIUM [Suspect]
     Indication: HERPES SIMPLEX
     Route: 048
     Dates: start: 20100616, end: 20100616
  2. SPIRONOLACTONE [Concomitant]
     Indication: ACNE

REACTIONS (12)
  - AGITATION [None]
  - ASTHENIA [None]
  - CHILLS [None]
  - CONVULSION [None]
  - DYSARTHRIA [None]
  - DYSKINESIA [None]
  - DYSPHEMIA [None]
  - FATIGUE [None]
  - LETHARGY [None]
  - LOSS OF CONSCIOUSNESS [None]
  - NIGHT SWEATS [None]
  - SPEECH DISORDER [None]
